FAERS Safety Report 5287636-3 (Version None)
Quarter: 2007Q1

REPORT INFORMATION
  Report Type: 
  Country: None (occurrence: None)
  Receive Date: 20070105
  Receipt Date: 20060929
  Transmission Date: 20070707
  Serious: Yes (Other)
  Sender: FDA-Public Use
  Company Number: 20060215

PATIENT
  Age: 50 Year
  Sex: Male

DRUGS (1)
  1. VENOFER [Suspect]
     Dosage: 8 GRAMS OVER 8 MONTHS PERIOD INTRAVENOUS
     Route: 042
     Dates: start: 20050101, end: 20050801

REACTIONS (1)
  - IRON OVERLOAD [None]
